FAERS Safety Report 18655738 (Version 1)
Quarter: 2020Q4

REPORT INFORMATION
  Report Type: Spontaneous
  Country: US (occurrence: US)
  Receive Date: 20201223
  Receipt Date: 20201223
  Transmission Date: 20210114
  Serious: Yes (Other)
  Sender: FDA-Public Use
  Company Number: US-SA-2020SA362505

PATIENT

DRUGS (1)
  1. DIPHENHYDRAMINE HYDROCHLORIDE. [Suspect]
     Active Substance: DIPHENHYDRAMINE HYDROCHLORIDE

REACTIONS (5)
  - Overdose [Recovered/Resolved]
  - Coma [Recovered/Resolved]
  - Hyperpyrexia [Recovered/Resolved]
  - Status epilepticus [Recovered/Resolved]
  - Arrhythmia [Recovered/Resolved]
